FAERS Safety Report 21388068 (Version 1)
Quarter: 2022Q3

REPORT INFORMATION
  Report Type: Spontaneous
  Country: US (occurrence: US)
  Receive Date: 20220928
  Receipt Date: 20220928
  Transmission Date: 20221027
  Serious: No
  Sender: FDA-Public Use
  Company Number: US-SA-SAC20220926000716

PATIENT
  Age: 70 Year
  Sex: Female

DRUGS (1)
  1. DUPIXENT [Suspect]
     Active Substance: DUPILUMAB
     Indication: Asthma
     Dosage: 200 MG , QOW
     Route: 058
     Dates: start: 20220806

REACTIONS (3)
  - Apathy [Not Recovered/Not Resolved]
  - Sluggishness [Not Recovered/Not Resolved]
  - Depressed mood [Not Recovered/Not Resolved]
